FAERS Safety Report 5787331-8 (Version None)
Quarter: 2008Q2

REPORT INFORMATION
  Report Type: 
  Country: None (occurrence: None)
  Receive Date: 20080625
  Receipt Date: 20070904
  Transmission Date: 20081010
  Serious: No
  Sender: FDA-Public Use
  Company Number: US-ASTRAZENECA-2007UW20812

PATIENT
  Age: 47 Year
  Sex: Female
  Weight: 95.3 kg

DRUGS (4)
  1. PULMICORT FLEXHALER [Suspect]
     Indication: ASTHMA
     Dosage: 180 MCG 2 PUFFS AM, 2 PUFFS PM
     Route: 055
  2. ZYRTEC [Concomitant]
  3. SINGULAIR [Concomitant]
  4. ATROVENT [Concomitant]

REACTIONS (2)
  - DRUG EFFECT DECREASED [None]
  - DYSPNOEA [None]
